FAERS Safety Report 5231362-3 (Version None)
Quarter: 2007Q1

REPORT INFORMATION
  Report Type: 
  Country: None (occurrence: None)
  Receive Date: 20070206
  Receipt Date: 20070202
  Transmission Date: 20070707
  Serious: Yes (Hospitalization)
  Sender: FDA-Public Use
  Company Number: US-GLAXOSMITHKLINE-A0638369A

PATIENT

DRUGS (1)
  1. BEXXAR [Suspect]
     Indication: DRUG USE FOR UNKNOWN INDICATION
     Route: 042

REACTIONS (2)
  - PYREXIA [None]
  - SWELLING [None]
